FAERS Safety Report 4865867-1 (Version None)
Quarter: 2005Q4

REPORT INFORMATION
  Report Type: 
  Country: None (occurrence: None)
  Receive Date: 20051220
  Receipt Date: 20051207
  Transmission Date: 20060501
  Serious: Yes (Hospitalization, Other)
  Sender: FDA-Public Use
  Company Number: 2005158706

PATIENT
  Age: 77 Year
  Sex: Female

DRUGS (6)
  1. DIFLUCAN [Suspect]
     Indication: URINARY TRACT INFECTION FUNGAL
     Dosage: 100 MG (1 IN 1 D), UNKNOWN
     Dates: start: 20051110, end: 20051115
  2. HOKUNALIN (TULOBUTEROL HYDROCHLORIDE) [Suspect]
     Indication: ASTHMA
     Dosage: 2 MG (2 MG, 1 IN 1 D), UNKNOWN
     Dates: start: 20051105, end: 20051115
  3. FLUITRAN (TRICHLORMETHIAZIDE) (TRICHLORMETHIAZIDE) [Suspect]
     Indication: OLIGURIA
     Dosage: 6 MG 92 MG, 3 IN 1 D), ORAL
     Route: 048
     Dates: start: 20051102, end: 20051116
  4. THEOLONG (THEOPHYLLINE) (THEOPHYLLINE) [Suspect]
     Indication: ASTHMA
     Dosage: 200 MG (100 MG, 2 IN 1 D), ORAL
     Route: 048
     Dates: start: 20051107, end: 20051112
  5. COTRIM [Suspect]
     Indication: BACTERIAL INFECTION
     Dosage: 2 TAB, (2 IN 1 D), ORAL
     Route: 048
     Dates: start: 20051110, end: 20051116
  6. FLUITRAN (TRICHLORMETHIAZIDE) [Concomitant]

REACTIONS (17)
  - AORTIC VALVE INCOMPETENCE [None]
  - BLOOD CHLORIDE DECREASED [None]
  - CANDIDURIA [None]
  - CATHETER RELATED INFECTION [None]
  - CONVULSION [None]
  - ELECTROCARDIOGRAM QT PROLONGED [None]
  - EXTRASYSTOLES [None]
  - HYPOALBUMINAEMIA [None]
  - HYPOKALAEMIA [None]
  - HYPOKINESIA [None]
  - HYPOTHYROIDISM [None]
  - MITRAL VALVE INCOMPETENCE [None]
  - PLEURAL EFFUSION [None]
  - RENAL FAILURE CHRONIC [None]
  - TORSADE DE POINTES [None]
  - TRICUSPID VALVE INCOMPETENCE [None]
  - VENTRICULAR TACHYCARDIA [None]
